FAERS Safety Report 13640403 (Version 1)
Quarter: 2017Q2

REPORT INFORMATION
  Report Type: Spontaneous
  Country: US (occurrence: US)
  Receive Date: 20170610
  Receipt Date: 20170610
  Transmission Date: 20170830
  Serious: No
  Sender: FDA-Public Use
  Company Number: US-009507513-1705USA007795

PATIENT
  Age: 18 Year
  Sex: Female
  Weight: 59.41 kg

DRUGS (1)
  1. IMPLANON [Suspect]
     Active Substance: ETONOGESTREL
     Indication: CONTRACEPTION
     Dosage: ONE 4-YEAR IMPLANT IN LEFT ARM
     Route: 059
     Dates: start: 20170417

REACTIONS (2)
  - Menorrhagia [Unknown]
  - Product use issue [Unknown]

NARRATIVE: CASE EVENT DATE: 20170417
